FAERS Safety Report 4799703-9 (Version None)
Quarter: 2005Q4

REPORT INFORMATION
  Report Type: 
  Country: None (occurrence: None)
  Receive Date: 20051011
  Receipt Date: 20050928
  Transmission Date: 20060501
  Serious: Yes (Disabling)
  Sender: FDA-Public Use
  Company Number: 2005136295

PATIENT
  Age: 79 Year
  Sex: Female

DRUGS (5)
  1. LYRICA [Suspect]
     Indication: PAIN
     Dosage: UNKNOWN (150 MG, UNKNOWN), ORAL
     Route: 048
     Dates: start: 20050501, end: 20050601
  2. PREDNISONE [Concomitant]
  3. THYROXINE (LEVOTHYROXINE) [Concomitant]
  4. FRUMIL (AMILORIDE HYDROCHLORIDE, FUROSEMIDE) [Concomitant]
  5. LOPID [Concomitant]

REACTIONS (4)
  - CORNEAL GRAFT REJECTION [None]
  - HEPATIC FUNCTION ABNORMAL [None]
  - MUSCULAR WEAKNESS [None]
  - PAIN IN EXTREMITY [None]
